FAERS Safety Report 16376549 (Version 1)
Quarter: 2019Q3

REPORT INFORMATION
  Report Type: Spontaneous
  Country: US (occurrence: US)
  Receive Date: 20190530
  Receipt Date: 20190530
  Transmission Date: 20191004
  Serious: Yes (Disabling, Other)
  Sender: FDA-Public Use
  Company Number: None

PATIENT
  Age: 38 Year
  Sex: Male
  Weight: 76.5 kg

DRUGS (1)
  1. INTRON A [Suspect]
     Active Substance: INTERFERON ALFA-2B
     Indication: HUMAN PAPILLOMA VIRUS TEST POSITIVE
     Dosage: ?          QUANTITY:5 INJECTION(S);OTHER FREQUENCY:3 WEEKLY;?
     Route: 058
     Dates: start: 20180306, end: 20180503

REACTIONS (2)
  - Neoplasm [None]
  - Human papilloma virus test positive [None]

NARRATIVE: CASE EVENT DATE: 20180405
